FAERS Safety Report 5019535-6 (Version None)
Quarter: 2006Q2

REPORT INFORMATION
  Report Type: 
  Country: None (occurrence: None)
  Receive Date: 20060530
  Receipt Date: 20060512
  Transmission Date: 20061013
  Serious: Yes (Hospitalization)
  Sender: FDA-Public Use
  Company Number: DSA_28131_2006

PATIENT
  Age: 21 Year
  Sex: Female
  Weight: 51.8 kg

DRUGS (3)
  1. TAVOR [Suspect]
     Indication: DEPRESSION
     Dosage: 2 MG Q DAY PO
     Route: 048
     Dates: start: 20041206
  2. NEUROCIL /00038602/ [Suspect]
     Indication: SUICIDAL IDEATION
     Dosage: 50 MG ONCE
     Dates: start: 20041208, end: 20041208
  3. ZOLOFT [Concomitant]

REACTIONS (6)
  - BLOOD PRESSURE DECREASED [None]
  - BLOOD PRESSURE SYSTOLIC INCREASED [None]
  - DRUG INTERACTION [None]
  - GENERAL PHYSICAL HEALTH DETERIORATION [None]
  - HEART RATE DECREASED [None]
  - SYNCOPE [None]
